FAERS Safety Report 22338191 (Version 1)
Quarter: 2023Q2

REPORT INFORMATION
  Report Type: Spontaneous
  Country: US (occurrence: None)
  Receive Date: 20230517
  Receipt Date: 20230517
  Transmission Date: 20230722
  Serious: No
  Sender: FDA-Public Use
  Company Number: None

PATIENT
  Age: 74 Year
  Sex: Female
  Weight: 62.6 kg

DRUGS (12)
  1. CAPECITABINE [Suspect]
     Active Substance: CAPECITABINE
     Indication: Breast cancer female
     Dosage: 1500MG TWICE DAILY ORAL?
     Route: 048
  2. AMOXICILLIN [Concomitant]
     Active Substance: AMOXICILLIN
  3. CALCIUM\CHOLECALCIFEROL [Concomitant]
     Active Substance: CALCIUM\CHOLECALCIFEROL
  4. TEA [Concomitant]
     Active Substance: TEA LEAF
  5. IBUPROFEN [Concomitant]
     Active Substance: IBUPROFEN
  6. LETROZOLE [Concomitant]
     Active Substance: LETROZOLE
  7. LEVOTHYROXINE [Concomitant]
     Active Substance: LEVOTHYROXINE
  8. MAGIC MUSHROOM MIX [Concomitant]
  9. VITAMIN A [Concomitant]
     Active Substance: VITAMIN A
  10. VITAMIN B12 [Concomitant]
     Active Substance: CYANOCOBALAMIN
  11. VITAMIN C [Concomitant]
     Active Substance: ASCORBIC ACID
  12. VITAMIN K1 [Concomitant]
     Active Substance: PHYTONADIONE

REACTIONS (6)
  - Tenderness [None]
  - Musculoskeletal disorder [None]
  - Nausea [None]
  - Oral pain [None]
  - Lip swelling [None]
  - Pain in extremity [None]
